FAERS Safety Report 5278714-3 (Version None)
Quarter: 2007Q1

REPORT INFORMATION
  Report Type: 
  Country: None (occurrence: None)
  Receive Date: 20061213
  Receipt Date: 20050415
  Transmission Date: 20070707
  Serious: No
  Sender: FDA-Public Use
  Company Number: 2005UW05896

PATIENT
  Age: 60 Year
  Sex: Male

DRUGS (1)
  1. SEROQUEL [Suspect]
     Indication: SLEEP DISORDER
     Dosage: 25 MG PO
     Route: 048
     Dates: start: 20050408, end: 20050413

REACTIONS (1)
  - TREMOR [None]
